FAERS Safety Report 7699762-X (Version None)
Quarter: 2011Q3

REPORT INFORMATION
  Report Type: 
  Country: None (occurrence: None)
  Receive Date: 20110816
  Receipt Date: 20110801
  Transmission Date: 20111222
  Serious: Yes (Other)
  Sender: FDA-Public Use
  Company Number: KR-ACCORD-010284

PATIENT

DRUGS (2)
  1. MYCOPHENOLATE MOFETIL [Suspect]
     Indication: NEPHROTIC SYNDROME
  2. CYCLOSPORINE [Suspect]
     Indication: NEPHROTIC SYNDROME

REACTIONS (1)
  - AZOTAEMIA [None]
